FAERS Safety Report 6208047-X (Version None)
Quarter: 2009Q2

REPORT INFORMATION
  Report Type: 
  Country: None (occurrence: None)
  Receive Date: 20090529
  Receipt Date: 20090319
  Transmission Date: 20091009
  Serious: No
  Sender: FDA-Public Use
  Company Number: US-KINGPHARMUSA00001-K200900311

PATIENT

DRUGS (1)
  1. FLECTOR [Suspect]
     Indication: MYALGIA
     Dosage: 2 PATCH, SINGLE
     Route: 061

REACTIONS (3)
  - DRUG ADMINISTRATION ERROR [None]
  - INCORRECT DOSE ADMINISTERED [None]
  - NO ADVERSE EVENT [None]
